FAERS Safety Report 7772692-0 (Version None)
Quarter: 2011Q3

REPORT INFORMATION
  Report Type: 
  Country: None (occurrence: None)
  Receive Date: 20110922
  Receipt Date: 20100115
  Transmission Date: 20111222
  Serious: No
  Sender: FDA-Public Use
  Company Number: US-ASTRAZENECA-2009SE17928

PATIENT
  Age: 36 Year
  Sex: Female
  Weight: 149.7 kg

DRUGS (25)
  1. SEROQUEL [Suspect]
     Route: 048
     Dates: start: 20090101
  2. ZOCOR [Concomitant]
     Indication: DYSLIPIDAEMIA
     Dates: start: 20090101
  3. LEXAPRO [Concomitant]
     Indication: OBSESSIVE-COMPULSIVE DISORDER
  4. SEROQUEL [Suspect]
     Indication: PSYCHOTIC DISORDER
     Route: 048
     Dates: start: 20030811, end: 20090101
  5. RISPERDAL [Concomitant]
     Indication: PSYCHOTIC DISORDER
     Dates: start: 20021003
  6. ZYPREXA [Concomitant]
     Indication: DEPRESSION
     Dates: start: 20031204
  7. TRAZODONE HYDROCHLORIDE [Concomitant]
     Dates: start: 20031204
  8. KLONOPIN [Concomitant]
     Dates: start: 20090101
  9. LEXAPRO [Concomitant]
     Dates: start: 20090101
  10. SINGULAIR [Concomitant]
     Dates: start: 20090101
  11. SEROQUEL [Suspect]
     Indication: MANIA
     Route: 048
     Dates: start: 20030811, end: 20090101
  12. BENICAR HCT [Concomitant]
     Indication: HYPERTENSION
     Dosage: 40/12.5MG
     Dates: start: 20090101
  13. NEXIUM [Concomitant]
     Dates: start: 20090101
  14. SEROQUEL [Suspect]
     Route: 048
     Dates: start: 20090101
  15. LITHIUM [Concomitant]
     Indication: BIPOLAR DISORDER
     Dates: start: 20021003
  16. LEVOTHYROXINE SODIUM [Concomitant]
     Dates: start: 20090101
  17. LYRICA [Concomitant]
     Dates: start: 20090101
  18. NORVASC [Concomitant]
     Dates: start: 20090101
  19. CLONIDINE [Concomitant]
     Dates: start: 20090101
  20. TOPROL-XL [Concomitant]
     Dates: start: 20090101
  21. ABILIFY [Concomitant]
  22. ABILIFY [Concomitant]
     Dates: start: 20090101
  23. TRAZODONE HYDROCHLORIDE [Concomitant]
     Dates: start: 20090101
  24. PREVACID [Concomitant]
     Dosage: PRN
     Dates: start: 20090101
  25. TOPAMAX [Concomitant]
     Dates: start: 20031201

REACTIONS (8)
  - BLOOD TRIGLYCERIDES INCREASED [None]
  - DYSLIPIDAEMIA [None]
  - TYPE 2 DIABETES MELLITUS [None]
  - BLOOD CHOLESTEROL INCREASED [None]
  - METABOLIC SYNDROME [None]
  - OBESITY [None]
  - TYPE 1 DIABETES MELLITUS [None]
  - HYPERLIPIDAEMIA [None]
